FAERS Safety Report 7709020-2 (Version None)
Quarter: 2011Q3

REPORT INFORMATION
  Report Type: 
  Country: None (occurrence: None)
  Receive Date: 20110825
  Receipt Date: 20110816
  Transmission Date: 20111222
  Serious: Yes (Other)
  Sender: FDA-Public Use
  Company Number: US-NOVOPROD-333919

PATIENT
  Sex: Female
  Weight: 71.5 kg

DRUGS (1)
  1. NORDITROPIN FLEXPRO [Suspect]
     Indication: TURNER'S SYNDROME
     Dosage: UNK
     Route: 058
     Dates: end: 20110101

REACTIONS (2)
  - HEADACHE [None]
  - HAIR FOLLICLE TUMOUR BENIGN [None]
